FAERS Safety Report 7513641-X (Version None)
Quarter: 2011Q2

REPORT INFORMATION
  Report Type: 
  Country: None (occurrence: None)
  Receive Date: 20110531
  Receipt Date: 20110523
  Transmission Date: 20111010
  Serious: Yes (Other)
  Sender: FDA-Public Use
  Company Number: US-TEVA-282261USA

PATIENT
  Sex: Female

DRUGS (1)
  1. CETIRIZINE HCL AND PSEUDOEPHEDRINE HCL [Suspect]
     Dosage: 1 TABLET DAILY
     Route: 048
     Dates: start: 20110512, end: 20110513

REACTIONS (2)
  - DIZZINESS [None]
  - HYPOAESTHESIA [None]
